FAERS Safety Report 9448447 (Version 1)
Quarter: 2013Q3

REPORT INFORMATION
  Report Type: Spontaneous
  Country: FR (occurrence: FR)
  Receive Date: 20130808
  Receipt Date: 20130808
  Transmission Date: 20140515
  Serious: Yes (Death, Life-Threatening)
  Sender: FDA-Public Use
  Company Number: FR-SANOFI-AVENTIS-2013SA077654

PATIENT
  Age: 92 Year
  Sex: Female

DRUGS (9)
  1. LOVENOX [Suspect]
     Indication: PRODUCT USED FOR UNKNOWN INDICATION
     Route: 065
     Dates: start: 20121216, end: 20121228
  2. PREVISCAN [Suspect]
     Indication: PRODUCT USED FOR UNKNOWN INDICATION
     Route: 048
     Dates: start: 20121222, end: 20121231
  3. PREVISCAN [Suspect]
     Indication: PRODUCT USED FOR UNKNOWN INDICATION
     Route: 048
     Dates: end: 20121216
  4. ALLOPURINOL [Concomitant]
  5. BISOPROLOL [Concomitant]
  6. CANDESARTAN [Concomitant]
  7. FORLAX [Concomitant]
  8. PARACETAMOL [Concomitant]
     Dosage: DOSE:6 UNIT(S)
  9. DIFFU K [Concomitant]

REACTIONS (3)
  - Cardio-respiratory arrest [Fatal]
  - Shock haemorrhagic [Fatal]
  - Hypotension [Fatal]
